FAERS Safety Report 10950071 (Version 2)
Quarter: 2015Q2

REPORT INFORMATION
  Report Type: Report from Study
  Country: US (occurrence: US)
  Receive Date: 20150324
  Receipt Date: 20150625
  Transmission Date: 20150821
  Serious: Yes (Other)
  Sender: FDA-Public Use
  Company Number: US-EXELIXIS-CABO-15005199

PATIENT
  Age: 75 Year
  Sex: Female

DRUGS (14)
  1. LIPITOR [Concomitant]
     Active Substance: ATORVASTATIN CALCIUM
  2. VITAMIN D3 [Concomitant]
     Active Substance: CHOLECALCIFEROL
  3. LEVOTHYROXINE [Concomitant]
     Active Substance: LEVOTHYROXINE
  4. PREVACID [Concomitant]
     Active Substance: LANSOPRAZOLE
  5. LOPRESSOR [Concomitant]
     Active Substance: METOPROLOL TARTRATE
  6. ASPIRIN. [Concomitant]
     Active Substance: ASPIRIN
  7. CABOZANTINIB [Suspect]
     Active Substance: CABOZANTINIB
     Indication: RENAL CANCER
     Dosage: 140 MG, QD
     Route: 048
     Dates: start: 20150127, end: 20150128
  8. CABOZANTINIB [Suspect]
     Active Substance: CABOZANTINIB
     Dosage: 80 MG, QD
     Route: 048
     Dates: start: 20150129, end: 20150129
  9. UCERIS [Concomitant]
     Active Substance: BUDESONIDE
  10. CABOZANTINIB [Suspect]
     Active Substance: CABOZANTINIB
     Dosage: 100 MG, QD
     Route: 048
     Dates: start: 20150130, end: 20150204
  11. LASIX [Concomitant]
     Active Substance: FUROSEMIDE
  12. CABOZANTINIB [Suspect]
     Active Substance: CABOZANTINIB
     Dosage: 80 MG, QD
     Route: 048
     Dates: start: 20150227, end: 20150403
  13. LORAZEPAM. [Concomitant]
     Active Substance: LORAZEPAM
  14. ZOLOFT [Concomitant]
     Active Substance: SERTRALINE HYDROCHLORIDE

REACTIONS (19)
  - Clostridium difficile infection [Unknown]
  - Depressed mood [Unknown]
  - Arthralgia [Unknown]
  - Wheezing [Unknown]
  - Blood pressure increased [Not Recovered/Not Resolved]
  - Toxicity to various agents [Unknown]
  - Peripheral swelling [Unknown]
  - Dyspnoea [Unknown]
  - Dermatitis [Unknown]
  - Pain in jaw [Unknown]
  - Oropharyngeal pain [Unknown]
  - Off label use [Unknown]
  - Pain [Unknown]
  - Diarrhoea [Recovered/Resolved]
  - Headache [Unknown]
  - Rectal haemorrhage [Recovered/Resolved]
  - Cellulitis [Not Recovered/Not Resolved]
  - Cyanosis [Unknown]
  - Neck pain [Unknown]

NARRATIVE: CASE EVENT DATE: 2015
